FAERS Safety Report 10993440 (Version 1)
Quarter: 2015Q2

REPORT INFORMATION
  Report Type: Spontaneous
  Country: US (occurrence: None)
  Receive Date: 20150406
  Receipt Date: 20150406
  Transmission Date: 20150821
  Serious: No
  Sender: FDA-Public Use
  Company Number: None

PATIENT
  Age: 57 Year
  Sex: Female
  Weight: 61.24 kg

DRUGS (1)
  1. AZITHROMYCIN [Suspect]
     Active Substance: AZITHROMYCIN ANHYDROUS
     Indication: BRONCHITIS
     Dosage: 6 PILLS
     Route: 048
     Dates: start: 20150331, end: 20150405

REACTIONS (5)
  - Anxiety [None]
  - Dyspnoea [None]
  - Pain [None]
  - Back pain [None]
  - Abdominal distension [None]

NARRATIVE: CASE EVENT DATE: 20150331
